FAERS Safety Report 12846807 (Version 1)
Quarter: 2016Q4

REPORT INFORMATION
  Report Type: Spontaneous
  Country: US (occurrence: US)
  Receive Date: 20161013
  Receipt Date: 20161013
  Transmission Date: 20170207
  Serious: Yes (Death)
  Sender: FDA-Public Use
  Company Number: None

PATIENT
  Age: 43 Year
  Sex: Female

DRUGS (1)
  1. ISOVUE 370 [Suspect]
     Active Substance: IOPAMIDOL
     Indication: INVESTIGATION
     Dosage: ?          OTHER FREQUENCY:ONCE FOR PROCEDURE;?
     Route: 040
     Dates: start: 20161012, end: 20161012

REACTIONS (1)
  - Death [None]

NARRATIVE: CASE EVENT DATE: 20161012
